FAERS Safety Report 8168462-4 (Version None)
Quarter: 2012Q1

REPORT INFORMATION
  Report Type: 
  Country: None (occurrence: None)
  Receive Date: 20120227
  Receipt Date: 20120221
  Transmission Date: 20120608
  Serious: Yes (Life-Threatening, Hospitalization, Other)
  Sender: FDA-Public Use
  Company Number: US-BAYER-2011-091906

PATIENT
  Age: 17 Year
  Sex: Female
  Weight: 56.4 kg

DRUGS (6)
  1. NORCO [Concomitant]
     Indication: BACK PAIN
     Dosage: UNK
     Route: 048
     Dates: start: 20090901
  2. NORGESTIMATE AND ETHINYL ESTRADIOL [Concomitant]
     Dosage: UNK
     Dates: start: 20090927
  3. TETRACYCLINE [Concomitant]
     Indication: UNEVALUABLE EVENT
     Dosage: UNK UNK, QD
  4. ANTIBIOTICS [Concomitant]
  5. WELLBUTRIN [Concomitant]
     Dosage: 150 MG, QD
  6. YAZ [Suspect]

REACTIONS (7)
  - GENERAL PHYSICAL HEALTH DETERIORATION [None]
  - THROMBOSIS [None]
  - PAIN [None]
  - ANHEDONIA [None]
  - EMOTIONAL DISTRESS [None]
  - DEEP VEIN THROMBOSIS [None]
  - INJURY [None]
